FAERS Safety Report 16565095 (Version 1)
Quarter: 2019Q3

REPORT INFORMATION
  Report Type: Spontaneous
  Country: US (occurrence: US)
  Receive Date: 20190711
  Receipt Date: 20190711
  Transmission Date: 20191004
  Serious: Yes (Hospitalization)
  Sender: FDA-Public Use
  Company Number: None

PATIENT
  Age: 35 Year
  Sex: Female
  Weight: 74.25 kg

DRUGS (8)
  1. URO-MP GENERIC FOR URIBEL [Suspect]
     Active Substance: HYOSCYAMINE SULFATE\METHENAMINE\METHYLENE BLUE\PHENYL SALICYLATE\SODIUM PHOSPHATE, MONOBASIC, MONOHYDRATE
     Indication: BLADDER PAIN
     Dosage: ?          QUANTITY:1 CAPSULE(S);?
     Route: 048
     Dates: start: 20190707, end: 20190710
  2. CHANCA PIEDRA [Concomitant]
  3. VITAMIN C [Concomitant]
     Active Substance: ASCORBIC ACID
  4. RANITIDINE. [Concomitant]
     Active Substance: RANITIDINE
  5. MUCINEX [Concomitant]
     Active Substance: GUAIFENESIN
  6. BUSPIRONE [Concomitant]
     Active Substance: BUSPIRONE HYDROCHLORIDE
  7. URO-MP GENERIC FOR URIBEL [Suspect]
     Active Substance: HYOSCYAMINE SULFATE\METHENAMINE\METHYLENE BLUE\PHENYL SALICYLATE\SODIUM PHOSPHATE, MONOBASIC, MONOHYDRATE
     Indication: MICTURITION URGENCY
     Dosage: ?          QUANTITY:1 CAPSULE(S);?
     Route: 048
     Dates: start: 20190707, end: 20190710
  8. BUPROPION. [Concomitant]
     Active Substance: BUPROPION

REACTIONS (15)
  - Dyspnoea [None]
  - Blood phosphorus decreased [None]
  - Muscle twitching [None]
  - Musculoskeletal stiffness [None]
  - Headache [None]
  - Hypertension [None]
  - Tachycardia [None]
  - Vision blurred [None]
  - Dizziness [None]
  - Confusional state [None]
  - Palpitations [None]
  - Burning sensation [None]
  - Hypoaesthesia oral [None]
  - Paraesthesia [None]
  - Chest pain [None]

NARRATIVE: CASE EVENT DATE: 20190710
